FAERS Safety Report 16389896 (Version 1)
Quarter: 2019Q2

REPORT INFORMATION
  Report Type: Spontaneous
  Country: FR (occurrence: FR)
  Receive Date: 20190604
  Receipt Date: 20190604
  Transmission Date: 20190711
  Serious: Yes (Other)
  Sender: FDA-Public Use
  Company Number: FR-PURDUE-GBR-2019-0066867

PATIENT
  Age: 27 Year
  Sex: Female
  Weight: 104 kg

DRUGS (18)
  1. PANTOPRAZOLE [Concomitant]
     Active Substance: PANTOPRAZOLE
  2. OXYNORM [Suspect]
     Active Substance: OXYCODONE HYDROCHLORIDE
     Indication: PAIN
     Dosage: (STRENGTH 50 MG/ML)
     Route: 042
     Dates: start: 20190327, end: 20190408
  3. ALPRAZOLAM. [Suspect]
     Active Substance: ALPRAZOLAM
     Indication: ANXIETY
     Dosage: 2 DF, DAILY
     Route: 048
     Dates: start: 20190330, end: 20190408
  4. SANDIMMUN [Concomitant]
     Active Substance: CYCLOSPORINE
     Dosage: UNK
  5. ONDANSETRON [Concomitant]
     Active Substance: ONDANSETRON
  6. SMECTA [Concomitant]
     Active Substance: MONTMORILLONITE
     Dosage: UNK
  7. ULTRAPROCT                         /01707601/ [Concomitant]
  8. TRANXENE [Suspect]
     Active Substance: CLORAZEPATE DIPOTASSIUM
     Indication: ANXIETY
     Dosage: 2 DF, DAILY (STRENGTH 5MG)
     Route: 048
     Dates: start: 20190327, end: 20190405
  9. VFEND [Concomitant]
     Active Substance: VORICONAZOLE
     Dosage: UNK
  10. ZARZIO [Concomitant]
     Active Substance: FILGRASTIM
  11. SANDIMMUN [Concomitant]
     Active Substance: CYCLOSPORINE
     Dosage: UNK
  12. RACECADOTRIL [Concomitant]
     Active Substance: RACECADOTRIL
  13. CELLCEPT [Concomitant]
     Active Substance: MYCOPHENOLATE MOFETIL\MYCOPHENOLATE MOFETIL HYDROCHLORIDE
  14. MAGNE B6                           /01431101/ [Concomitant]
  15. VANCOMYCINE [Concomitant]
     Active Substance: VANCOMYCIN
  16. VALACICLOVIR [Concomitant]
     Active Substance: VALACYCLOVIR HYDROCHLORIDE
  17. DAFLON                             /01026201/ [Concomitant]
     Active Substance: DIOSMIN\HESPERIDIN
  18. SMECTA [Concomitant]
     Active Substance: MONTMORILLONITE
     Dosage: UNK

REACTIONS (1)
  - Coma [Recovered/Resolved]

NARRATIVE: CASE EVENT DATE: 20190405
